FAERS Safety Report 12350803 (Version 11)
Quarter: 2017Q2

REPORT INFORMATION
  Report Type: Report from Study
  Country: CA (occurrence: CA)
  Receive Date: 20160510
  Receipt Date: 20170523
  Transmission Date: 20170830
  Serious: Yes (Hospitalization, Other)
  Sender: FDA-Public Use
  Company Number: CA-INCYTE CORPORATION-2016IN001154

PATIENT

DRUGS (15)
  1. ASA [Concomitant]
     Active Substance: ASPIRIN
     Indication: PRODUCT USED FOR UNKNOWN INDICATION
     Dosage: 81 MG, UNK
     Route: 065
  2. VITAMIN D [Concomitant]
     Active Substance: CHOLECALCIFEROL
     Indication: PRODUCT USED FOR UNKNOWN INDICATION
     Route: 065
  3. JAKAVI [Suspect]
     Active Substance: RUXOLITINIB
     Dosage: 20 MG, BID
     Route: 048
  4. JAKAVI [Suspect]
     Active Substance: RUXOLITINIB
     Dosage: 15 MG, BID
     Route: 048
     Dates: start: 20160811
  5. EPREX [Concomitant]
     Active Substance: ERYTHROPOIETIN
     Indication: PRODUCT USED FOR UNKNOWN INDICATION
     Dosage: UNK UNK, QW
     Route: 065
     Dates: start: 201608
  6. JAKAVI [Suspect]
     Active Substance: RUXOLITINIB
     Dosage: 15 MG, BID
     Route: 048
  7. JAKAVI [Suspect]
     Active Substance: RUXOLITINIB
     Dosage: 10 MG, BID
     Route: 048
     Dates: start: 20160520
  8. JAKAVI [Suspect]
     Active Substance: RUXOLITINIB
     Indication: MYELOFIBROSIS
     Dosage: 15 MG, BID
     Route: 048
     Dates: start: 20160212
  9. ASA [Concomitant]
     Active Substance: ASPIRIN
     Dosage: 81 MG, QD
  10. ASA [Concomitant]
     Active Substance: ASPIRIN
     Dosage: 81 MG, QD
  11. ASA [Concomitant]
     Active Substance: ASPIRIN
     Dosage: 81 MG, QD
  12. ASA [Concomitant]
     Active Substance: ASPIRIN
     Dosage: 81 MG, QD
  13. ASA [Concomitant]
     Active Substance: ASPIRIN
     Dosage: 81 MG, QD
  14. ASA [Concomitant]
     Active Substance: ASPIRIN
     Dosage: 81 MG, QD
  15. ASA [Concomitant]
     Active Substance: ASPIRIN
     Dosage: 81 MG, QD

REACTIONS (32)
  - Blood count abnormal [Unknown]
  - Dyspnoea [Unknown]
  - Asthenia [Unknown]
  - Stress [Unknown]
  - Myalgia [Recovered/Resolved]
  - Platelet count decreased [Unknown]
  - Hypertension [Recovering/Resolving]
  - Wrong technique in product usage process [Unknown]
  - Lower respiratory tract infection [Unknown]
  - Neutrophil count decreased [Unknown]
  - Hypoaesthesia [Recovered/Resolved]
  - Pain [Unknown]
  - Leukaemia [Unknown]
  - Fatigue [Unknown]
  - Erythema [Unknown]
  - Wound [Unknown]
  - Tenderness [Unknown]
  - Tongue disorder [Recovered/Resolved]
  - White blood cell count decreased [Unknown]
  - Rash [Not Recovered/Not Resolved]
  - Cardiac flutter [Unknown]
  - Haemoglobin decreased [Not Recovered/Not Resolved]
  - Muscle spasms [Unknown]
  - Infection [Unknown]
  - Rash pruritic [Unknown]
  - Contusion [Unknown]
  - Palpitations [Unknown]
  - Pruritus [Unknown]
  - Pain in extremity [Unknown]
  - Tinnitus [Unknown]
  - Oral pain [Unknown]
  - Chills [Unknown]

NARRATIVE: CASE EVENT DATE: 20160213
